FAERS Safety Report 5723849-1 (Version None)
Quarter: 2008Q2

REPORT INFORMATION
  Report Type: 
  Country: None (occurrence: None)
  Receive Date: 20080429
  Receipt Date: 20080429
  Transmission Date: 20081010
  Serious: Yes (Disabling)
  Sender: FDA-Public Use
  Company Number: None

PATIENT
  Sex: Female
  Weight: 108.8633 kg

DRUGS (1)
  1. DROPERIDOL [Suspect]
     Indication: MIGRAINE
     Dosage: 2.5MG  1 DOSE   IV
     Route: 042
     Dates: start: 20080421, end: 20080421

REACTIONS (6)
  - ATRIAL FIBRILLATION [None]
  - HEART RATE INCREASED [None]
  - PALPITATIONS [None]
  - PLEURISY [None]
  - RESTLESS LEGS SYNDROME [None]
  - TREMOR [None]
